FAERS Safety Report 18615952 (Version 2)
Quarter: 2020Q4

REPORT INFORMATION
  Report Type: Spontaneous
  Country: US (occurrence: US)
  Receive Date: 20201215
  Receipt Date: 20201223
  Transmission Date: 20210114
  Serious: Yes (Hospitalization)
  Sender: FDA-Public Use
  Company Number: US-GLOBAL BLOOD THERAPEUTICS INC-US-GBT-20-03833

PATIENT
  Age: 14 Year
  Sex: Male

DRUGS (1)
  1. OXBRYTA [Suspect]
     Active Substance: VOXELOTOR
     Indication: SICKLE CELL DISEASE
     Route: 048
     Dates: start: 20200310

REACTIONS (6)
  - Asthenia [Unknown]
  - Cautery to nose [Unknown]
  - Decreased appetite [Unknown]
  - Abdominal pain upper [Unknown]
  - Epistaxis [Unknown]
  - Vein rupture [Unknown]

NARRATIVE: CASE EVENT DATE: 2020
